FAERS Safety Report 6181306-5 (Version None)
Quarter: 2009Q2

REPORT INFORMATION
  Report Type: 
  Country: None (occurrence: None)
  Receive Date: 20090501
  Receipt Date: 20090116
  Transmission Date: 20091009
  Serious: No
  Sender: FDA-Public Use
  Company Number: 2009000189

PATIENT
  Age: 56 Year
  Sex: Female
  Weight: 102.5129 kg

DRUGS (9)
  1. TREANDA [Suspect]
     Indication: NON-HODGKIN'S LYMPHOMA
     Dosage: (188 MG) , INTRAVENOUS
     Route: 042
     Dates: start: 20090115
  2. BENADRYL [Concomitant]
  3. ZANTAC [Concomitant]
  4. DECADRON [Concomitant]
  5. RITUXAN [Concomitant]
  6. ALLOPURINOL [Concomitant]
  7. SIMVASTATIN [Concomitant]
  8. LEXAPRO [Concomitant]
  9. ATACAND [Concomitant]

REACTIONS (1)
  - INFUSION SITE EXTRAVASATION [None]
